FAERS Safety Report 8541664-0 (Version None)
Quarter: 2012Q3

REPORT INFORMATION
  Report Type: 
  Country: None (occurrence: None)
  Receive Date: 20120726
  Receipt Date: 20120717
  Transmission Date: 20120928
  Serious: Yes (Other)
  Sender: FDA-Public Use
  Company Number: FR-GLAXOSMITHKLINE-B0815072A

PATIENT
  Sex: Female

DRUGS (4)
  1. OMEPRAZOLE [Concomitant]
     Dosage: 20MG PER DAY
     Route: 048
  2. LAMICTAL [Suspect]
     Indication: PARTIAL SEIZURES
     Dosage: 50MG PER DAY
     Route: 048
  3. AMITRIPTYLINE HYDROCHLORIDE [Suspect]
     Indication: DEPRESSION
     Dosage: 50MG THREE TIMES PER DAY
     Route: 048
  4. NOCTRAN [Suspect]
     Indication: PRODUCT USED FOR UNKNOWN INDICATION
     Dosage: 1UNIT PER DAY
     Route: 048

REACTIONS (2)
  - MATERNAL EXPOSURE DURING PREGNANCY [None]
  - PREMATURE LABOUR [None]
